FAERS Safety Report 8292719-X (Version None)
Quarter: 2012Q2

REPORT INFORMATION
  Report Type: 
  Country: None (occurrence: None)
  Receive Date: 20120417
  Receipt Date: 20111103
  Transmission Date: 20120825
  Serious: No
  Sender: FDA-Public Use
  Company Number: US-ASTRAZENECA-2011SE63055

PATIENT
  Age: 74 Year
  Sex: Female
  Weight: 70.3 kg

DRUGS (10)
  1. TOPROL-XL [Suspect]
     Indication: CARDIAC DISORDER
     Route: 048
  2. NEURONTIN [Concomitant]
     Indication: NEUROPATHY PERIPHERAL
  3. NEXIUM [Suspect]
     Indication: GASTROOESOPHAGEAL REFLUX DISEASE
     Route: 048
     Dates: start: 20050101
  4. FISH OIL [Concomitant]
  5. ACTONEL [Concomitant]
     Indication: BONE DISORDER
  6. CALTRATE PLUS D [Concomitant]
     Indication: BLOOD CALCIUM
  7. ASPIRIN [Concomitant]
     Indication: CARDIAC DISORDER
  8. CRESTOR [Suspect]
     Indication: BLOOD CHOLESTEROL
     Route: 048
  9. VITAMIN D [Concomitant]
  10. LEXAPRO [Concomitant]
     Indication: ANTIDEPRESSANT THERAPY

REACTIONS (2)
  - MALAISE [None]
  - DRUG DOSE OMISSION [None]
